FAERS Safety Report 4623208-9 (Version None)
Quarter: 2005Q1

REPORT INFORMATION
  Report Type: 
  Country: None (occurrence: None)
  Receive Date: 20050330
  Receipt Date: 20050316
  Transmission Date: 20050727
  Serious: Yes (Hospitalization)
  Sender: FDA-Public Use
  Company Number: US014916

PATIENT
  Age: 16 Year
  Sex: Male
  Weight: 83.9154 kg

DRUGS (10)
  1. PROVIGIL [Suspect]
     Indication: NARCOLEPSY
     Dosage: 100 MG ONCE ORAL
     Route: 048
     Dates: start: 20040501, end: 20040501
  2. PROVIGIL [Suspect]
     Indication: NARCOLEPSY
     Dosage: 50 MG QD ORAL
     Route: 048
     Dates: start: 20050117, end: 20050101
  3. PROVIGIL [Suspect]
     Indication: NARCOLEPSY
     Dosage: 25 MG QD ORAL
     Route: 048
     Dates: start: 20050101
  4. PROVIGIL [Suspect]
     Indication: NARCOLEPSY
     Dosage: 12.5 MG QD ORAL
     Route: 048
     Dates: start: 20050301
  5. ADVAIR DISKUS 100/50 [Concomitant]
  6. SINGULAIR [Concomitant]
  7. PREVACID [Concomitant]
  8. NAPROXEN [Concomitant]
  9. EXTRA STRENGTH TYLENOL [Concomitant]
  10. ALBUTEROL [Concomitant]

REACTIONS (11)
  - ABASIA [None]
  - ASTHMA [None]
  - BALANCE DISORDER [None]
  - CHILLS [None]
  - CONDITION AGGRAVATED [None]
  - DIZZINESS [None]
  - DRY MOUTH [None]
  - FALL [None]
  - HEADACHE [None]
  - PARAPLEGIA [None]
  - SKIN DISCOLOURATION [None]
